FAERS Safety Report 9793183 (Version 3)
Quarter: 2014Q4

REPORT INFORMATION
  Report Type: Report from Study
  Country: FR (occurrence: FR)
  Receive Date: 20140102
  Receipt Date: 20141001
  Transmission Date: 20150529
  Serious: Yes (Other)
  Sender: FDA-Public Use
  Company Number: FR-BRISTOL-MYERS SQUIBB COMPANY-19940444

PATIENT
  Age: 66 Year
  Sex: Female

DRUGS (1)
  1. SPRYCEL [Suspect]
     Active Substance: DASATINIB
     Indication: CHRONIC MYELOID LEUKAEMIA
     Dosage: LAST DOSE:17-DEC-2013
     Route: 048
     Dates: start: 20111017, end: 20131220

REACTIONS (1)
  - Lymphadenopathy [Recovered/Resolved]

NARRATIVE: CASE EVENT DATE: 2013
